FAERS Safety Report 21539240 (Version 1)
Quarter: 2022Q4

REPORT INFORMATION
  Report Type: Report from Study
  Country: US (occurrence: US)
  Receive Date: 20221102
  Receipt Date: 20221102
  Transmission Date: 20230112
  Serious: Yes (Hospitalization)
  Sender: FDA-Public Use
  Company Number: US-ABBVIE-4184834

PATIENT
  Sex: Female

DRUGS (1)
  1. HUMIRA [Suspect]
     Active Substance: ADALIMUMAB
     Indication: Hidradenitis
     Dosage: STRENGHT;40MG, CITRATE FREE
     Route: 058
     Dates: end: 20220909

REACTIONS (2)
  - Pneumonia [Unknown]
  - Lung opacity [Recovering/Resolving]

NARRATIVE: CASE EVENT DATE: 20220101
